FAERS Safety Report 7294983-2 (Version None)
Quarter: 2011Q1

REPORT INFORMATION
  Report Type: 
  Country: None (occurrence: None)
  Receive Date: 20110216
  Receipt Date: 20110202
  Transmission Date: 20110831
  Serious: Yes (Other)
  Sender: FDA-Public Use
  Company Number: FR-BAYER-2011-011079

PATIENT
  Sex: Male

DRUGS (2)
  1. NEXAVAR [Suspect]
     Indication: HEPATIC NEOPLASM
     Dosage: 800 MG, UNK
     Route: 048
     Dates: start: 20100618, end: 20100716
  2. NEXAVAR [Suspect]
     Dosage: 400 MG, UNK
     Route: 048
     Dates: start: 20100717, end: 20100805

REACTIONS (2)
  - EPIDERMOLYSIS [None]
  - NO ADVERSE EVENT [None]
